FAERS Safety Report 4853058-X (Version None)
Quarter: 2005Q4

REPORT INFORMATION
  Report Type: 
  Country: None (occurrence: None)
  Receive Date: 20051214
  Receipt Date: 20051207
  Transmission Date: 20060501
  Serious: Yes (Other)
  Sender: FDA-Public Use
  Company Number: AU-AVENTIS-200520852GDDC

PATIENT
  Age: 62 Year
  Sex: Male

DRUGS (5)
  1. ARAVA [Suspect]
     Indication: RHEUMATOID ARTHRITIS
     Dosage: DOSE: UNK
     Route: 048
     Dates: start: 20051130, end: 20051205
  2. METHOTREXATE [Concomitant]
     Dosage: DOSE: UNK
  3. PRESSIN [Concomitant]
     Dosage: DOSE: UNK
  4. SERETIDE [Concomitant]
     Dosage: DOSE: UNK
  5. ASMOL [Concomitant]
     Dosage: DOSE: UNK

REACTIONS (2)
  - BRONCHITIS [None]
  - PLEURISY [None]
